APPROVED DRUG PRODUCT: FASLODEX
Active Ingredient: FULVESTRANT
Strength: 125MG/2.5ML (50MG/ML)
Dosage Form/Route: SOLUTION;INTRAMUSCULAR
Application: N021344 | Product #002
Applicant: ASTRAZENECA PHARMACEUTICALS LP
Approved: Apr 25, 2002 | RLD: Yes | RS: No | Type: DISCN